FAERS Safety Report 17144757 (Version 1)
Quarter: 2019Q4

REPORT INFORMATION
  Report Type: Spontaneous
  Country: US (occurrence: US)
  Receive Date: 20191212
  Receipt Date: 20191212
  Transmission Date: 20200122
  Serious: No
  Sender: FDA-Public Use
  Company Number: US-NOVEN PHARMACEUTICALS, INC.-US2019000244

PATIENT

DRUGS (3)
  1. MINIVELLE [Suspect]
     Active Substance: ESTRADIOL
     Indication: OFF LABEL USE
     Dosage: 0.4 MG, QOD
     Route: 062
     Dates: start: 201904
  2. MINIVELLE [Suspect]
     Active Substance: ESTRADIOL
     Indication: IN VITRO FERTILISATION
     Dosage: 0.4 MG, QOD
     Route: 062
     Dates: start: 201902, end: 2019
  3. PROGESTERONE. [Concomitant]
     Active Substance: PROGESTERONE
     Dosage: 1 ML, NIGHT

REACTIONS (4)
  - Product packaging quantity issue [Recovered/Resolved]
  - No adverse event [Unknown]
  - Off label use [Not Recovered/Not Resolved]
  - Therapy cessation [Recovered/Resolved]

NARRATIVE: CASE EVENT DATE: 2019
